FAERS Safety Report 4914276-5 (Version None)
Quarter: 2006Q1

REPORT INFORMATION
  Report Type: 
  Country: None (occurrence: None)
  Receive Date: 20060216
  Receipt Date: 20060206
  Transmission Date: 20060701
  Serious: Yes (Other)
  Sender: FDA-Public Use
  Company Number: BR-BRISTOL-MYERS SQUIBB COMPANY-13273677

PATIENT
  Age: 37 Year
  Sex: Male
  Weight: 75 kg

DRUGS (3)
  1. REYATAZ [Suspect]
     Indication: HIV INFECTION
     Dates: start: 20050201
  2. BIOVIR [Suspect]
     Indication: HIV INFECTION
  3. LEVITRA [Suspect]

REACTIONS (2)
  - EUPHORIC MOOD [None]
  - VISUAL DISTURBANCE [None]
